FAERS Safety Report 5035143-5 (Version None)
Quarter: 2006Q2

REPORT INFORMATION
  Report Type: 
  Country: None (occurrence: None)
  Receive Date: 20060519
  Receipt Date: 20060123
  Transmission Date: 20061013
  Serious: No
  Sender: FDA-Public Use
  Company Number: TPA2005A01715

PATIENT
  Age: 59 Year
  Sex: Female
  Weight: 57.6068 kg

DRUGS (5)
  1. ROZEREM [Suspect]
     Indication: INSOMNIA
     Dosage: 8 MG, HS, PER ORAL
     Route: 048
     Dates: start: 20051014, end: 20051015
  2. AMBIEN [Suspect]
     Indication: SLEEP DISORDER
     Dosage: PER ORAL
     Route: 048
  3. BIOIDENTICAL ESTROGEN (ESTROGENS) (0.25 MILLIGRAM) [Concomitant]
  4. TESTOSTERONE CREAM (TESTOSTERONE) [Concomitant]
  5. PROGESTERONE CREAM (PROGESTERONE) [Concomitant]

REACTIONS (5)
  - ERYTHEMA [None]
  - HEADACHE [None]
  - INSOMNIA [None]
  - PRURITUS [None]
  - URTICARIA [None]
